FAERS Safety Report 7533526-2 (Version None)
Quarter: 2011Q2

REPORT INFORMATION
  Report Type: 
  Country: None (occurrence: None)
  Receive Date: 20110608
  Receipt Date: 20060118
  Transmission Date: 20111010
  Serious: Yes (Death)
  Sender: FDA-Public Use
  Company Number: PHHO2006KR01086

PATIENT
  Sex: Female
  Weight: 60 kg

DRUGS (2)
  1. ZOMETA [Suspect]
     Indication: METASTASES TO BONE
     Dosage: 4 MG, QD
     Dates: start: 20031020
  2. FEMARA [Concomitant]
     Indication: BREAST CANCER
     Dates: start: 20031020

REACTIONS (1)
  - DEATH [None]
